FAERS Safety Report 7361665-8 (Version None)
Quarter: 2011Q1

REPORT INFORMATION
  Report Type: 
  Country: None (occurrence: None)
  Receive Date: 20110318
  Receipt Date: 20110311
  Transmission Date: 20110831
  Serious: Yes (Hospitalization, Other)
  Sender: FDA-Public Use
  Company Number: US-PFIZER INC-2007009035

PATIENT
  Sex: Female

DRUGS (12)
  1. PROCHLORPERAZINE [Concomitant]
     Dosage: UNK
     Dates: start: 20021121, end: 20040209
  2. FLUOXETINE [Concomitant]
     Dosage: UNK
     Dates: start: 20021120, end: 20040526
  3. FLONASE [Concomitant]
     Dosage: UNK
     Dates: start: 20021120, end: 20040608
  4. ASCORBIC ACID [Concomitant]
     Dosage: UNK
     Dates: start: 20021211, end: 20040526
  5. NEURONTIN [Suspect]
     Indication: HEADACHE
     Dosage: UNK
     Route: 048
     Dates: start: 20030916, end: 20040526
  6. IMITREX [Concomitant]
     Dosage: UNK
     Dates: start: 20030916, end: 20040913
  7. AMITRIPTYLINE [Suspect]
     Indication: SLEEP DISORDER
     Dosage: UNK
  8. HYDROXYZINE [Concomitant]
     Dosage: UNK
     Dates: start: 20030610, end: 20040318
  9. LEVOTHROID [Concomitant]
     Dosage: UNK
     Dates: start: 20021120, end: 20040526
  10. IBUPROFEN [Concomitant]
     Dosage: UNK
     Dates: start: 20030610, end: 20040113
  11. CLARITIN [Concomitant]
     Dosage: UNK
     Dates: start: 20030828, end: 20040113
  12. PROTONIX [Concomitant]
     Dosage: UNK
     Dates: start: 20030530, end: 20040526

REACTIONS (5)
  - SUICIDE ATTEMPT [None]
  - DRUG INEFFECTIVE [None]
  - INTENTIONAL OVERDOSE [None]
  - SUICIDAL IDEATION [None]
  - DEPRESSION [None]
